FAERS Safety Report 4826830-X (Version None)
Quarter: 2005Q4

REPORT INFORMATION
  Report Type: 
  Country: None (occurrence: None)
  Receive Date: 20051014
  Receipt Date: 20050630
  Transmission Date: 20060501
  Serious: No
  Sender: FDA-Public Use
  Company Number: 2005SP001713

PATIENT
  Sex: Female

DRUGS (3)
  1. LUNESTA [Suspect]
     Indication: INSOMNIA
     Dosage: 3 MG;HS;ORAL
     Route: 048
     Dates: start: 20050101, end: 20050101
  2. ALPRAZOLAM [Concomitant]
  3. TRAZODONE HCL [Concomitant]

REACTIONS (3)
  - DRUG INEFFECTIVE [None]
  - HANGOVER [None]
  - MIDDLE INSOMNIA [None]
